FAERS Safety Report 5775976-0 (Version None)
Quarter: 2008Q2

REPORT INFORMATION
  Report Type: 
  Country: None (occurrence: None)
  Receive Date: 20080617
  Receipt Date: 20080610
  Transmission Date: 20081010
  Serious: Yes (Hospitalization)
  Sender: FDA-Public Use
  Company Number: JP-ABBOTT-08P-087-0455161-00

PATIENT
  Age: 70 Year
  Sex: Male

DRUGS (2)
  1. LEUPROLIDE ACETATE [Suspect]
     Indication: PROSTATE CANCER
     Route: 058
     Dates: start: 20051222
  2. BICALUTAMIDE [Concomitant]
     Indication: PROSTATE CANCER
     Route: 048

REACTIONS (2)
  - DYSPHONIA [None]
  - VOCAL CORD POLYP [None]
